FAERS Safety Report 10359015 (Version 1)
Quarter: 2014Q3

REPORT INFORMATION
  Report Type: Spontaneous
  Country: GB (occurrence: GB)
  Receive Date: 20140804
  Receipt Date: 20140804
  Transmission Date: 20150326
  Serious: Yes (Disabling)
  Sender: FDA-Public Use
  Company Number: GB-ACCORD-024999

PATIENT
  Age: 45 Year
  Sex: Female
  Weight: 63.5 kg

DRUGS (15)
  1. GARLIC EXTRACT [Concomitant]
  2. ERGOCALCIFEROL. [Concomitant]
     Active Substance: ERGOCALCIFEROL
  3. UBIQUINOL [Concomitant]
  4. FEXOFENADINE/FEXOFENADINE HYDROCHLORIDE [Concomitant]
  5. MAGNESIUM HYDROXIDE. [Concomitant]
     Active Substance: MAGNESIUM HYDROXIDE
  6. OXITRIPTAN [Concomitant]
     Active Substance: OXITRIPTAN
  7. COD-LIVER OIL [Concomitant]
     Active Substance: FISH OIL
  8. KELP [Concomitant]
     Active Substance: KELP
  9. GABAPENTIN. [Concomitant]
     Active Substance: GABAPENTIN
  10. SAGE. [Concomitant]
     Active Substance: SAGE
  11. MENOPACE [Concomitant]
  12. CYANOCOBALAMIN. [Concomitant]
     Active Substance: CYANOCOBALAMIN
  13. CARNITINE/CARNITINE HYDROCHLORIDE [Concomitant]
  14. NALTREXONE/NALTREXONE HYDROCHLORIDE [Suspect]
     Active Substance: NALTREXONE
     Indication: PRODUCT USED FOR UNKNOWN INDICATION
     Dosage: LOW DOSE
     Route: 048
     Dates: start: 20140710, end: 20140715
  15. SULFASALAZINE. [Concomitant]
     Active Substance: SULFASALAZINE

REACTIONS (11)
  - Dry eye [Not Recovered/Not Resolved]
  - Pharyngeal oedema [Recovering/Resolving]
  - Condition aggravated [Not Recovered/Not Resolved]
  - Oral discomfort [Not Recovered/Not Resolved]
  - Lip swelling [Recovering/Resolving]
  - Abdominal distension [None]
  - Photosensitivity reaction [None]
  - Eye irritation [Not Recovered/Not Resolved]
  - Spondylitis [Not Recovered/Not Resolved]
  - Drug ineffective [Unknown]
  - Post viral fatigue syndrome [Not Recovered/Not Resolved]

NARRATIVE: CASE EVENT DATE: 20140712
